FAERS Safety Report 25589224 (Version 1)
Quarter: 2025Q3

REPORT INFORMATION
  Report Type: Report from Study
  Country: US (occurrence: US)
  Receive Date: 20250722
  Receipt Date: 20250722
  Transmission Date: 20251021
  Serious: No
  Sender: AVERITAS
  Company Number: US-GRUNENTHAL-2025-110829

PATIENT
  Sex: Male

DRUGS (1)
  1. QUTENZA [Suspect]
     Active Substance: CAPSAICIN
     Indication: Diabetic neuropathy
     Route: 061
     Dates: start: 20250701, end: 20250701

REACTIONS (4)
  - Limb discomfort [Unknown]
  - Blister [Unknown]
  - Burning sensation [Unknown]
  - Accidental exposure to product [Unknown]
